FAERS Safety Report 16763397 (Version 2)
Quarter: 2019Q4

REPORT INFORMATION
  Report Type: Spontaneous
  Country: CZ (occurrence: CZ)
  Receive Date: 20190902
  Receipt Date: 20191018
  Transmission Date: 20200122
  Serious: Yes (Other)
  Sender: FDA-Public Use
  Company Number: CZ-JNJFOC-20190836778

PATIENT
  Sex: Male

DRUGS (10)
  1. MONOPRIL [Concomitant]
     Active Substance: FOSINOPRIL SODIUM
     Dosage: 1/2
     Dates: start: 20190715
  2. NUTRIDRINK [Concomitant]
     Active Substance: CARBOHYDRATES\FATTY ACIDS\MINERALS\PROTEIN\VITAMINS
  3. MILURIT [Concomitant]
     Active Substance: ALLOPURINOL
     Dosage: 1X
  4. IMBRUVICA [Suspect]
     Active Substance: IBRUTINIB
     Route: 065
     Dates: start: 20190712, end: 20190725
  5. HERPESIN                           /00587301/ [Concomitant]
     Active Substance: ACYCLOVIR
     Dosage: 1-0-1
  6. SUMETROLIM [Concomitant]
     Active Substance: SULFAMETHOXAZOLE\TRIMETHOPRIM
     Dosage: 0-0-1
  7. IMBRUVICA [Suspect]
     Active Substance: IBRUTINIB
     Indication: CHRONIC LYMPHOCYTIC LEUKAEMIA
     Route: 065
     Dates: start: 20190209
  8. FURON                              /00032601/ [Concomitant]
     Active Substance: FUROSEMIDE
     Dosage: 1-0-0
  9. GEFINA [Concomitant]
     Dosage: 0-0-1
     Dates: start: 20190715
  10. IMBRUVICA [Suspect]
     Active Substance: IBRUTINIB
     Route: 065
     Dates: start: 20190514

REACTIONS (3)
  - Chronic lymphocytic leukaemia [Unknown]
  - Enterocolitis bacterial [Unknown]
  - Colitis [Recovered/Resolved]

NARRATIVE: CASE EVENT DATE: 20190404
